FAERS Safety Report 8360004-3 (Version None)
Quarter: 2012Q2

REPORT INFORMATION
  Report Type: 
  Country: None (occurrence: None)
  Receive Date: 20120515
  Receipt Date: 20120511
  Transmission Date: 20120825
  Serious: Yes (Death, Other)
  Sender: FDA-Public Use
  Company Number: PHHY2012PE031404

PATIENT
  Sex: Female

DRUGS (1)
  1. ZOMETA [Suspect]
     Indication: METASTASES TO BONE
     Dosage: 4 MG, QMO
     Route: 042
     Dates: start: 20120222, end: 20120404

REACTIONS (4)
  - PAIN [None]
  - RESPIRATORY ARREST [None]
  - RESPIRATORY DISTRESS [None]
  - FATIGUE [None]
